FAERS Safety Report 6752916-9 (Version None)
Quarter: 2010Q2

REPORT INFORMATION
  Report Type: 
  Country: None (occurrence: None)
  Receive Date: 20100602
  Receipt Date: 20100602
  Transmission Date: 20101027
  Serious: No
  Sender: FDA-Public Use
  Company Number: None

PATIENT
  Sex: Female
  Weight: 133.8111 kg

DRUGS (2)
  1. LISINOPRIL AND HYDROCHLOROTHIAZIDE [Suspect]
     Indication: COUGH
     Dosage: 20/25 1/2 DAY PO
     Route: 048
  2. LISINOPRIL AND HYDROCHLOROTHIAZIDE [Suspect]
     Indication: DRUG INEFFECTIVE
     Dosage: 20/25 1/2 DAY PO
     Route: 048

REACTIONS (2)
  - COUGH [None]
  - RETINAL HAEMORRHAGE [None]
